FAERS Safety Report 6016939-X (Version None)
Quarter: 2008Q4

REPORT INFORMATION
  Report Type: 
  Country: None (occurrence: None)
  Receive Date: 20081219
  Receipt Date: 20070522
  Transmission Date: 20090506
  Serious: No
  Sender: FDA-Public Use
  Company Number: TEST00207032642

PATIENT
  Sex: Female

DRUGS (1)
  1. TESTOSTERONE [Suspect]
     Indication: ACCIDENTAL EXPOSURE
     Dosage: TRANSCUTANEOUS
     Route: 003

REACTIONS (3)
  - ACCIDENTAL EXPOSURE [None]
  - BLOOD TESTOSTERONE INCREASED [None]
  - ENLARGED CLITORIS [None]
